FAERS Safety Report 24681236 (Version 2)
Quarter: 2025Q3

REPORT INFORMATION
  Report Type: Spontaneous
  Country: BR (occurrence: BR)
  Receive Date: 20241129
  Receipt Date: 20250809
  Transmission Date: 20251021
  Serious: Yes (Other)
  Sender: ALEXION PHARMACEUTICALS
  Company Number: BR-ASTRAZENECA-202411SAM022812BR

PATIENT
  Age: 5 Year
  Sex: Female

DRUGS (6)
  1. KOSELUGO [Suspect]
     Active Substance: SELUMETINIB
     Route: 065
  2. KOSELUGO [Suspect]
     Active Substance: SELUMETINIB
     Route: 065
     Dates: start: 20240801, end: 20240904
  3. KOSELUGO [Suspect]
     Active Substance: SELUMETINIB
     Route: 065
  4. GABAPENTIN [Concomitant]
     Active Substance: GABAPENTIN
     Dosage: 15 MILLIGRAM/KILOGRAM, QD
     Route: 065
     Dates: start: 202305
  5. GABAPENTIN [Concomitant]
     Active Substance: GABAPENTIN
     Dosage: 60 MILLIGRAM/KILOGRAM, QD
     Route: 065
     Dates: start: 202307
  6. GABAPENTIN [Concomitant]
     Active Substance: GABAPENTIN
     Dosage: 72 MILLIGRAM/KILOGRAM, QD
     Route: 065
     Dates: start: 202401

REACTIONS (6)
  - Seizure [Unknown]
  - Headache [Not Recovered/Not Resolved]
  - Nausea [Not Recovered/Not Resolved]
  - Abdominal pain [Not Recovered/Not Resolved]
  - Hyperphagia [Unknown]
  - Vertigo [Unknown]

NARRATIVE: CASE EVENT DATE: 20240924
